FAERS Safety Report 12381341 (Version 1)
Quarter: 2016Q2

REPORT INFORMATION
  Report Type: Spontaneous
  Country: US (occurrence: None)
  Receive Date: 20160517
  Receipt Date: 20160517
  Transmission Date: 20160815
  Serious: No
  Sender: FDA-Public Use
  Company Number: None

PATIENT
  Age: 54 Year
  Sex: Female
  Weight: 87.09 kg

DRUGS (10)
  1. THYROID [Concomitant]
     Active Substance: LEVOTHYROXINE\LIOTHYRONINE
  2. LISINOPRIL. [Concomitant]
     Active Substance: LISINOPRIL
  3. HUMALOG [Concomitant]
     Active Substance: INSULIN LISPRO
  4. COREG [Concomitant]
     Active Substance: CARVEDILOL
  5. FISH OIL [Concomitant]
     Active Substance: FISH OIL
  6. MELOXICAM. [Suspect]
     Active Substance: MELOXICAM
     Indication: ARTHRALGIA
     Dosage: 15MG 1 TAB 1XDAY 1 DAILY MOUTH
     Route: 048
  7. BABY ASPIIRIN [Concomitant]
  8. TYLENOL WITH CODEINE [Concomitant]
     Active Substance: ACETAMINOPHEN\CODEINE PHOSPHATE
  9. TROLIIJO [Concomitant]
  10. CRESTOR [Concomitant]
     Active Substance: ROSUVASTATIN CALCIUM

REACTIONS (2)
  - Myalgia [None]
  - Arthralgia [None]

NARRATIVE: CASE EVENT DATE: 20160506
